FAERS Safety Report 24188020 (Version 1)
Quarter: 2024Q3

REPORT INFORMATION
  Report Type: Spontaneous
  Country: US (occurrence: None)
  Receive Date: 20240807
  Receipt Date: 20240807
  Transmission Date: 20241017
  Serious: No
  Sender: Public
  Company Number: None

PATIENT

DRUGS (2)
  1. BYLVAY [Suspect]
     Active Substance: ODEVIXIBAT
  2. BYLVAY [Suspect]
     Active Substance: ODEVIXIBAT

REACTIONS (2)
  - Product label confusion [None]
  - Product dosage form issue [None]
